FAERS Safety Report 12713280 (Version 1)
Quarter: 2016Q3

REPORT INFORMATION
  Report Type: Report from Study
  Country: US (occurrence: US)
  Receive Date: 20160902
  Receipt Date: 20160902
  Transmission Date: 20161109
  Serious: No
  Sender: FDA-Public Use
  Company Number: US-AMGEN-USASL2016107622

PATIENT
  Age: 63 Year
  Sex: Female

DRUGS (2)
  1. LEFLUNOMIDE. [Concomitant]
     Active Substance: LEFLUNOMIDE
     Dosage: UNK UNK, 3 TIMES/WK
     Route: 065
  2. ENBREL [Suspect]
     Active Substance: ETANERCEPT
     Indication: PSORIATIC ARTHROPATHY
     Dosage: UNK UNK, ONCE A WEEK
     Route: 065
     Dates: start: 2016

REACTIONS (7)
  - Eye inflammation [Not Recovered/Not Resolved]
  - Injection site urticaria [Recovered/Resolved]
  - Pain [Unknown]
  - Arthralgia [Unknown]
  - Visual impairment [Unknown]
  - Drug effect decreased [Unknown]
  - Myalgia [Unknown]

NARRATIVE: CASE EVENT DATE: 2016
